FAERS Safety Report 12334882 (Version 2)
Quarter: 2016Q3

REPORT INFORMATION
  Report Type: Spontaneous
  Country: US (occurrence: US)
  Receive Date: 20160504
  Receipt Date: 20160929
  Transmission Date: 20161109
  Serious: Yes (Hospitalization, Other)
  Sender: FDA-Public Use
  Company Number: US-BRISTOL-MYERS SQUIBB COMPANY-BMS-2016-033981

PATIENT
  Sex: Male

DRUGS (1)
  1. OPDIVO [Suspect]
     Active Substance: NIVOLUMAB
     Indication: RENAL CELL CARCINOMA
     Dosage: UNK UNK, QMO
     Route: 042
     Dates: start: 201105

REACTIONS (7)
  - Off label use [Unknown]
  - Arthritis [Unknown]
  - Arthralgia [Unknown]
  - Asthenia [Unknown]
  - Emphysema [Unknown]
  - Pneumonitis [Unknown]
  - Neoplasm [Unknown]
